FAERS Safety Report 7413100-9 (Version None)
Quarter: 2011Q2

REPORT INFORMATION
  Report Type: 
  Country: None (occurrence: None)
  Receive Date: 20110413
  Receipt Date: 20110407
  Transmission Date: 20111010
  Serious: Yes (Other)
  Sender: FDA-Public Use
  Company Number: US-PFIZER INC-2011077527

PATIENT
  Sex: Female

DRUGS (3)
  1. NEURONTIN [Suspect]
     Indication: PAIN IN EXTREMITY
     Dosage: 800 MG, 3X/DAY
     Route: 048
     Dates: start: 20041001, end: 20070101
  2. MORPHINE [Concomitant]
     Dosage: UNK
  3. DILANTIN [Concomitant]
     Dosage: UNK

REACTIONS (1)
  - MENTAL IMPAIRMENT [None]
